FAERS Safety Report 9667965 (Version 1)
Quarter: 2013Q4

REPORT INFORMATION
  Report Type: Spontaneous
  Country: US (occurrence: US)
  Receive Date: 20131104
  Receipt Date: 20131104
  Transmission Date: 20140711
  Serious: Yes (Hospitalization)
  Sender: FDA-Public Use
  Company Number: US-GLAXOSMITHKLINE-A1047523A

PATIENT
  Age: 60 Year
  Sex: Male

DRUGS (6)
  1. ADVAIR [Suspect]
     Indication: CHRONIC OBSTRUCTIVE PULMONARY DISEASE
     Dosage: 1PUFF TWICE PER DAY
     Route: 055
     Dates: start: 2008
  2. IPRATROPIUM BROMIDE + SALBUTAMOL [Concomitant]
     Route: 055
  3. SPIRIVA [Concomitant]
     Route: 065
  4. VENTOLIN HFA [Concomitant]
     Route: 055
  5. OXYGEN [Concomitant]
  6. RADIATION THERAPY [Concomitant]

REACTIONS (2)
  - Small cell lung cancer [Unknown]
  - Dyspnoea [Unknown]
